FAERS Safety Report 10602901 (Version 4)
Quarter: 2015Q2

REPORT INFORMATION
  Report Type: Report from Study
  Country: US (occurrence: US)
  Receive Date: 20141124
  Receipt Date: 20150409
  Transmission Date: 20150821
  Serious: Yes (Other)
  Sender: FDA-Public Use
  Company Number: US-009507513-1409USA000022

PATIENT
  Age: 62 Year
  Sex: Male
  Weight: 108.39 kg

DRUGS (17)
  1. NYSTATIN. [Concomitant]
     Active Substance: NYSTATIN
     Indication: PRURITUS
     Dosage: BID, DOSE 5  (UNITS: OTHER),  EVERY 12 HOURS
     Route: 048
     Dates: start: 20131007
  2. SYSTANE BALANCE [Concomitant]
     Active Substance: PROPYLENE GLYCOL
     Indication: CEREBROVASCULAR ACCIDENT
     Dosage: 1 APPLICATION, UNK, FREQUENCY OTHER,
     Route: 047
     Dates: start: 20140220
  3. TIMOLOL MALEATE. [Concomitant]
     Active Substance: TIMOLOL MALEATE
     Indication: PROPHYLAXIS
     Dosage: 1 APPLICATION EVERY 12 HOURS
     Route: 047
     Dates: start: 20140220
  4. AMLODIPINE [Concomitant]
     Active Substance: AMLODIPINE BESYLATE
     Indication: HYPERTENSION
     Dosage: 10 MG, QD
     Route: 048
     Dates: start: 20130616
  5. BENZONATATE. [Concomitant]
     Active Substance: BENZONATATE
     Indication: COUGH
     Dosage: 100 MG, PRN
     Route: 048
     Dates: start: 20130416
  6. ZYRTEE [Concomitant]
     Indication: COUGH
     Dosage: 10 MG, PRN
     Route: 048
     Dates: start: 20130428
  7. PEMBROLIZUMAB. [Suspect]
     Active Substance: PEMBROLIZUMAB
     Indication: MALIGNANT MELANOMA
     Dosage: 10 MG/KG, Q2W
     Route: 042
     Dates: start: 20130423
  8. PEMBROLIZUMAB. [Suspect]
     Active Substance: PEMBROLIZUMAB
     Dosage: 10 MG/KG, Q2W
     Route: 042
     Dates: start: 20140729, end: 20140729
  9. ALLOPURINOL. [Concomitant]
     Active Substance: ALLOPURINOL
     Indication: GOUT
     Dosage: 300 MG, QD
     Route: 048
     Dates: start: 2004
  10. ZYLET [Concomitant]
     Active Substance: LOTEPREDNOL ETABONATE\TOBRAMYCIN
     Indication: CEREBROVASCULAR ACCIDENT
     Dosage: 1 APPLICATION, FREQUENCY OTHER
     Route: 047
     Dates: start: 20140220
  11. PEMBROLIZUMAB. [Suspect]
     Active Substance: PEMBROLIZUMAB
     Dosage: 10 MG/KG, Q2W
     Route: 042
     Dates: start: 20141013
  12. VITAMINS (UNSPECIFIED) [Concomitant]
     Active Substance: VITAMINS
     Indication: ROUTINE HEALTH MAINTENANCE
     Dosage: 1 CAPSULE, QD
     Route: 048
     Dates: start: 2011
  13. DEXAMETHASONE (+) NEOMYCIN SULFATE (+) POLYMYXIN B SULFATE [Concomitant]
     Indication: CEREBROVASCULAR ACCIDENT
     Dosage: 1 APPLICATION, FREQUENCY OTHER
     Route: 047
     Dates: start: 20140220
  14. PANTOPRAZOLE [Concomitant]
     Active Substance: PANTOPRAZOLE SODIUM
     Indication: GASTROOESOPHAGEAL REFLUX DISEASE
     Dosage: 40 MG, QD
     Route: 048
     Dates: start: 2004
  15. TRIAMCINOLONE [Concomitant]
     Active Substance: TRIAMCINOLONE
     Indication: PRURITUS
     Dosage: 1 APPLICATION, QD
     Route: 061
     Dates: start: 20130421
  16. ADVIL [Concomitant]
     Active Substance: IBUPROFEN
     Indication: HYPERTENSION
     Dosage: 600 MG, PRN
     Route: 048
     Dates: start: 20130618
  17. ALREX [Concomitant]
     Active Substance: LOTEPREDNOL ETABONATE
     Indication: CEREBROVASCULAR ACCIDENT
     Dosage: 7 GTT (DROPS), QD
     Route: 047
     Dates: start: 20131203

REACTIONS (1)
  - Autoimmune hepatitis [Recovered/Resolved]

NARRATIVE: CASE EVENT DATE: 20140826
